FAERS Safety Report 6138445-4 (Version None)
Quarter: 2009Q1

REPORT INFORMATION
  Report Type: 
  Country: None (occurrence: None)
  Receive Date: 20090331
  Receipt Date: 20090323
  Transmission Date: 20090719
  Serious: Yes (Hospitalization)
  Sender: FDA-Public Use
  Company Number: JP-BRISTOL-MYERS SQUIBB COMPANY-14564744

PATIENT
  Age: 57 Year
  Sex: Male

DRUGS (2)
  1. EFAVIRENZ CAPS [Suspect]
     Route: 048
     Dates: start: 20081205, end: 20081223
  2. TRUVADA [Suspect]
     Route: 048
     Dates: start: 20081205, end: 20081223

REACTIONS (2)
  - BLOOD CREATININE INCREASED [None]
  - PROTEINURIA [None]
